FAERS Safety Report 16366747 (Version 2)
Quarter: 2019Q2

REPORT INFORMATION
  Report Type: Spontaneous
  Country: US (occurrence: US)
  Receive Date: 20190529
  Receipt Date: 20190612
  Transmission Date: 20190711
  Serious: No
  Sender: FDA-Public Use
  Company Number: US-LEXICON PHARMACEUTICALS, INC-19-1606-00567

PATIENT
  Age: 57 Year
  Sex: Male

DRUGS (1)
  1. TELOTRISTAT ETHYL [Suspect]
     Active Substance: TELOTRISTAT ETHYL
     Indication: CARCINOID SYNDROME
     Route: 048
     Dates: start: 20190402

REACTIONS (3)
  - Dysphagia [Recovered/Resolved]
  - Sensation of foreign body [Recovered/Resolved]
  - Swelling face [Recovering/Resolving]

NARRATIVE: CASE EVENT DATE: 20190430
